FAERS Safety Report 4975219-1 (Version None)
Quarter: 2006Q2

REPORT INFORMATION
  Report Type: 
  Country: None (occurrence: None)
  Receive Date: 20060418
  Receipt Date: 20060406
  Transmission Date: 20061013
  Serious: Yes (Hospitalization)
  Sender: FDA-Public Use
  Company Number: US-AVENTIS-200613843GDDC

PATIENT
  Age: 57 Year
  Sex: Male
  Weight: 109 kg

DRUGS (6)
  1. TAXOTERE [Suspect]
     Indication: NEOPLASM
     Route: 042
     Dates: start: 20060302, end: 20060302
  2. OXYCODONE [Concomitant]
     Dosage: DOSE: UNK
     Route: 048
  3. PARACETAMOL [Concomitant]
     Dosage: DOSE: UNK
     Route: 048
  4. ZOLEDRONIC ACID [Concomitant]
     Dosage: DOSE: UNK
     Route: 042
  5. IBUPROFEN [Concomitant]
     Dosage: DOSE: UNK
     Route: 048
  6. ZOLADEX [Concomitant]
     Dosage: DOSE: UNK
     Route: 058

REACTIONS (3)
  - BLOOD ALBUMIN DECREASED [None]
  - BLOOD SODIUM DECREASED [None]
  - HYPOCALCAEMIA [None]
